FAERS Safety Report 5316999-5 (Version None)
Quarter: 2007Q2

REPORT INFORMATION
  Report Type: 
  Country: None (occurrence: None)
  Receive Date: 20070504
  Receipt Date: 20070420
  Transmission Date: 20071010
  Serious: Yes (Other)
  Sender: FDA-Public Use
  Company Number: JP-ROCHE-330112

PATIENT
  Age: 79 Year
  Sex: Female
  Weight: 47 kg

DRUGS (10)
  1. TAMIFLU [Suspect]
     Indication: INFLUENZA
     Route: 048
     Dates: start: 20030102, end: 20030106
  2. NITOROL [Concomitant]
     Route: 048
     Dates: start: 20021209
  3. DIOVAN [Concomitant]
     Route: 048
  4. OMEPRAZOLE [Concomitant]
     Route: 048
  5. MAGNESIUM OXIDE [Concomitant]
     Dosage: DRUG REPORTED AS MAGLAX.
     Route: 048
  6. HALCION [Concomitant]
     Route: 048
  7. LEVOMEPROMAZINE MALEATE [Concomitant]
     Dosage: DRUG REPORTED AS LEVOTOMIN.
     Route: 048
     Dates: start: 20021209
  8. PAXIL [Concomitant]
     Route: 048
     Dates: start: 20021209
  9. ALOSENN [Concomitant]
     Route: 048
  10. TINELAC [Concomitant]
     Route: 048

REACTIONS (2)
  - DELUSION [None]
  - RESTLESSNESS [None]
